FAERS Safety Report 4316217-0 (Version None)
Quarter: 2004Q1

REPORT INFORMATION
  Report Type: 
  Country: None (occurrence: None)
  Receive Date: 20040312
  Receipt Date: 20040305
  Transmission Date: 20041129
  Serious: Yes (Hospitalization, Disabling)
  Sender: FDA-Public Use
  Company Number: WAES 0403USA00626

PATIENT
  Age: 61 Year
  Sex: Female

DRUGS (6)
  1. FOSAMAX [Suspect]
     Indication: OSTEOPOROSIS
     Route: 048
     Dates: start: 19980101, end: 20040201
  2. FOSAMAX [Suspect]
     Indication: OSTEOPENIA
     Route: 048
     Dates: start: 19980101, end: 20040201
  3. ARIMIDEX [Concomitant]
     Indication: BREAST CANCER
     Dates: start: 20030201, end: 20030101
  4. CALCIUM (UNSPECIFIED) [Concomitant]
  5. ESTROGENS (UNSPECIFIED) [Concomitant]
     Dates: end: 20021001
  6. VITAMIN D (UNSPECIFIED) [Concomitant]

REACTIONS (7)
  - BONE DISORDER [None]
  - BREAST CANCER [None]
  - FEMUR FRACTURE [None]
  - FRACTURE DELAYED UNION [None]
  - IMPAIRED HEALING [None]
  - PATHOLOGICAL FRACTURE [None]
  - RENAL OSTEODYSTROPHY [None]
